FAERS Safety Report 11831413 (Version 1)
Quarter: 2015Q4

REPORT INFORMATION
  Report Type: Spontaneous
  Country: US (occurrence: None)
  Receive Date: 20151211
  Receipt Date: 20151211
  Transmission Date: 20160305
  Serious: Yes (Hospitalization)
  Sender: FDA-Public Use
  Company Number: None

PATIENT
  Age: 80 Year
  Sex: Male

DRUGS (6)
  1. PRALUENT [Suspect]
     Active Substance: ALIROCUMAB
     Indication: HYPERCHOLESTEROLAEMIA
     Dosage: 75MG?Q14DAYS?SC
     Route: 058
     Dates: start: 20151022
  2. METOPROLOL [Concomitant]
     Active Substance: METOPROLOL
  3. BENZONATATE. [Concomitant]
     Active Substance: BENZONATATE
  4. PROMETH/COD SYP [Concomitant]
  5. PANTOPRAZOLE [Concomitant]
     Active Substance: PANTOPRAZOLE SODIUM
  6. AMOXICILLIO [Concomitant]

REACTIONS (2)
  - Back pain [None]
  - Chest pain [None]

NARRATIVE: CASE EVENT DATE: 20151210
